FAERS Safety Report 6863600-5 (Version None)
Quarter: 2010Q3

REPORT INFORMATION
  Report Type: 
  Country: None (occurrence: None)
  Receive Date: 20100721
  Receipt Date: 20080305
  Transmission Date: 20110219
  Serious: No
  Sender: FDA-Public Use
  Company Number: US-PFIZER INC-2008021789

PATIENT
  Sex: Male
  Weight: 63.6 kg

DRUGS (2)
  1. CHANTIX [Suspect]
     Indication: SMOKING CESSATION THERAPY
     Route: 048
     Dates: start: 20080228
  2. PAXIL [Concomitant]
     Route: 048

REACTIONS (4)
  - FEELING ABNORMAL [None]
  - IRRITABILITY [None]
  - MOOD SWINGS [None]
  - SEXUAL DYSFUNCTION [None]
